FAERS Safety Report 12738474 (Version 2)
Quarter: 2018Q4

REPORT INFORMATION
  Report Type: Spontaneous
  Country: US (occurrence: US)
  Receive Date: 20160913
  Receipt Date: 20181015
  Transmission Date: 20190204
  Serious: No
  Sender: FDA-Public Use
  Company Number: US-PFIZER INC-2015312366

PATIENT
  Age: 63 Year
  Sex: Female

DRUGS (1)
  1. CLEOCIN [Suspect]
     Active Substance: CLINDAMYCIN PHOSPHATE
     Indication: CONDITION AGGRAVATED
     Dosage: 100 MG, UNK (USED FOR 3 NIGHTS)
     Route: 067

REACTIONS (4)
  - Pain [Unknown]
  - Bedridden [Unknown]
  - Feeling hot [Unknown]
  - Decreased appetite [Unknown]
